FAERS Safety Report 20620778 (Version 2)
Quarter: 2024Q4

REPORT INFORMATION
  Report Type: Report from Study
  Country: GB (occurrence: GB)
  Receive Date: 20220322
  Receipt Date: 20241107
  Transmission Date: 20250114
  Serious: Yes (Death, Other)
  Sender: SANOFI AVENTIS
  Company Number: GB-SA-SAC20220321000851

PATIENT
  Age: 93 Year
  Sex: Male

DRUGS (1)
  1. DUPILUMAB [Suspect]
     Active Substance: DUPILUMAB
     Indication: Dermatitis atopic
     Dosage: 300 MG
     Route: 058
     Dates: start: 201812

REACTIONS (3)
  - Renal cancer [Not Recovered/Not Resolved]
  - Bladder cancer [Not Recovered/Not Resolved]
  - Death [Fatal]
